FAERS Safety Report 22393870 (Version 1)
Quarter: 2023Q2

REPORT INFORMATION
  Report Type: Spontaneous
  Country: ES (occurrence: ES)
  Receive Date: 20230601
  Receipt Date: 20230601
  Transmission Date: 20230722
  Serious: Yes (Other)
  Sender: FDA-Public Use
  Company Number: None

PATIENT
  Age: 52 Year
  Sex: Female

DRUGS (2)
  1. CLINDAMYCIN HYDROCHLORIDE [Suspect]
     Active Substance: CLINDAMYCIN HYDROCHLORIDE
     Indication: Breast inflammation
     Dosage: 300 MG, 4X/DAY (24 CAPSULES)
     Route: 048
     Dates: start: 20230511, end: 20230517
  2. IBUPROFEN [Concomitant]
     Active Substance: IBUPROFEN
     Indication: Breast inflammation
     Dosage: 400 MG, 3X/DAY (30 TABLETS)
     Route: 048
     Dates: start: 20230511, end: 20230512

REACTIONS (1)
  - Dermatitis allergic [Not Recovered/Not Resolved]

NARRATIVE: CASE EVENT DATE: 20230518
